FAERS Safety Report 7603780 (Version 9)
Quarter: 2012Q4

REPORT INFORMATION
  Report Type: Report from Study
  Country: FR (occurrence: FR)
  Receive Date: 20100923
  Receipt Date: 20120912
  Transmission Date: 20130627
  Serious: Yes (Life-Threatening, Hospitalization, Other)
  Sender: FDA-Public Use
  Company Number: FR-GILEAD-2010-0031976

PATIENT
  Age: 55 Year
  Sex: Female

DRUGS (14)
  1. TENOFOVIR DISOPROXIL FUMARATE [Suspect]
     Indication: HIV INFECTION
     Dosage: 245 mg, QD
     Dates: start: 20100803, end: 20100920
  2. LAMIVUDINE [Suspect]
     Indication: HIV INFECTION
     Dosage: 300 mg, QD
     Dates: start: 20100803, end: 20100920
  3. RALTEGRAVIR [Suspect]
     Indication: HIV INFECTION
     Dosage: 800 mg, QD
     Dates: start: 20100803, end: 20100920
  4. RALTEGRAVIR [Suspect]
     Dosage: 400 mg, UNK
     Dates: start: 20101112
  5. ISONIAZID [Suspect]
     Indication: TUBERCULOSIS
     Dosage: UNK
     Dates: start: 20100628, end: 20100920
  6. ASPIRIN [Suspect]
     Indication: PROPHYLAXIS
     Dosage: UNK
     Dates: start: 2010, end: 20100920
  7. ATORVASTATIN [Suspect]
     Indication: PROPHYLAXIS
     Dosage: UNK
     Dates: start: 2010, end: 20100920
  8. LANZOPRAZOL [Suspect]
     Indication: PROPHYLAXIS
     Dosage: UNK
     Dates: start: 2010, end: 20100920
  9. CHONDROITIN SULFATE [Suspect]
     Indication: PROPHYLAXIS
     Dosage: UNK
     Dates: start: 2010, end: 20100920
  10. TRAMADOL [Suspect]
     Indication: PROPHYLAXIS
     Dosage: UNK
     Dates: start: 2010, end: 20100920
  11. RIFAMPICIN [Suspect]
     Indication: TUBERCULOSIS
     Dosage: UNK
     Dates: start: 20100628, end: 20100920
  12. CEFIXIME [Suspect]
     Indication: PYREXIA
     Dosage: UNK
     Dates: start: 20100911, end: 20100918
  13. AUGMENTIN [Suspect]
     Indication: PYREXIA
     Dosage: UNK
     Dates: start: 20100907, end: 20100911
  14. TRUVADA [Concomitant]
     Indication: HIV INFECTION
     Dosage: UNK
     Dates: start: 20101112

REACTIONS (6)
  - Hepatitis fulminant [Recovered/Resolved with Sequelae]
  - Encephalopathy [Recovered/Resolved with Sequelae]
  - Prothrombin time shortened [Recovered/Resolved with Sequelae]
  - Aspartate aminotransferase increased [Recovered/Resolved with Sequelae]
  - Alanine aminotransferase increased [Recovered/Resolved with Sequelae]
  - Pyrexia [Recovered/Resolved with Sequelae]
